FAERS Safety Report 6776668-1 (Version None)
Quarter: 2010Q2

REPORT INFORMATION
  Report Type: 
  Country: None (occurrence: None)
  Receive Date: 20100617
  Receipt Date: 20100617
  Transmission Date: 20101027
  Serious: Yes (Hospitalization)
  Sender: FDA-Public Use
  Company Number: None

PATIENT
  Sex: Female
  Weight: 57.4 kg

DRUGS (2)
  1. CARBOPLATIN [Suspect]
     Dosage: 450 MG
     Dates: end: 20100601
  2. ETOPOSIDE [Suspect]
     Dosage: 474 MG
     Dates: end: 20100603

REACTIONS (6)
  - APPENDICITIS [None]
  - HAEMATOCRIT DECREASED [None]
  - HAEMOGLOBIN DECREASED [None]
  - PLATELET COUNT DECREASED [None]
  - PYREXIA [None]
  - WHITE BLOOD CELL COUNT DECREASED [None]
